FAERS Safety Report 10161622 (Version 1)
Quarter: 2014Q2

REPORT INFORMATION
  Report Type: Other
  Country: FR (occurrence: FR)
  Receive Date: 20140509
  Receipt Date: 20140509
  Transmission Date: 20141212
  Serious: Yes (Hospitalization)
  Sender: FDA-Public Use
  Company Number: FR-SUN PHARMACEUTICAL INDUSTRIES LTD-2014SUN00999

PATIENT
  Age: 59 Year
  Sex: Male

DRUGS (3)
  1. TEMOZOLOMIDE [Suspect]
     Indication: GLIOBLASTOMA
     Dosage: 300 MG, QD
     Route: 048
     Dates: start: 201307
  2. AVASTIN [Suspect]
     Indication: GLIOBLASTOMA
     Dosage: 80 MG QD
     Route: 051
     Dates: start: 20130719, end: 20131220
  3. MEDROL [Suspect]
     Indication: GLIOBLASTOMA
     Dosage: 16 MG, UNK
     Route: 048
     Dates: start: 2013, end: 201402

REACTIONS (1)
  - Impaired healing [Not Recovered/Not Resolved]
